FAERS Safety Report 5422818-9 (Version None)
Quarter: 2007Q3

REPORT INFORMATION
  Report Type: 
  Country: None (occurrence: None)
  Receive Date: 20070822
  Receipt Date: 20070810
  Transmission Date: 20080115
  Serious: Yes (Other)
  Sender: FDA-Public Use
  Company Number: US-PFIZER INC-2007066927

PATIENT
  Sex: Male
  Weight: 90 kg

DRUGS (1)
  1. EXUBERA [Suspect]
     Indication: DIABETES MELLITUS

REACTIONS (1)
  - WEIGHT INCREASED [None]
